FAERS Safety Report 21035998 (Version 1)
Quarter: 2022Q3

REPORT INFORMATION
  Report Type: Spontaneous
  Country: US (occurrence: US)
  Receive Date: 20220701
  Receipt Date: 20220701
  Transmission Date: 20221026
  Serious: No
  Sender: FDA-Public Use
  Company Number: US-KRAMERLABS-2021-US-012051

PATIENT
  Sex: Male

DRUGS (1)
  1. NIZORAL A-D [Suspect]
     Active Substance: KETOCONAZOLE
     Indication: Product used for unknown indication
     Dosage: UNKNOWN
     Route: 061

REACTIONS (5)
  - Application site pruritus [Recovering/Resolving]
  - Intentional product misuse [Unknown]
  - Product administered at inappropriate site [Unknown]
  - Application site dryness [Recovering/Resolving]
  - Product use in unapproved indication [Unknown]
